FAERS Safety Report 19098453 (Version 1)
Quarter: 2021Q2

REPORT INFORMATION
  Report Type: Spontaneous
  Country: GB (occurrence: GB)
  Receive Date: 20210406
  Receipt Date: 20210406
  Transmission Date: 20210717
  Serious: Yes (Other)
  Sender: FDA-Public Use
  Company Number: GB-TEVA-2021-GB-1897123

PATIENT
  Age: 43 Year
  Sex: Female
  Weight: 63 kg

DRUGS (2)
  1. ACCORD?UK LEVOTHYROXINE [Suspect]
     Active Substance: LEVOTHYROXINE SODIUM ANHYDROUS
     Indication: HYPOTHYROIDISM
     Dosage: 50 MG
     Route: 048
     Dates: start: 20210105, end: 20210226
  2. TEVA UK LEVOTHYROXINE [Suspect]
     Active Substance: LEVOTHYROXINE
     Indication: HYPOTHYROIDISM
     Dosage: 25 MG
     Route: 048
     Dates: start: 20210105, end: 20210226

REACTIONS (11)
  - Tinnitus [Recovering/Resolving]
  - Dyspnoea [Unknown]
  - Vision blurred [Recovering/Resolving]
  - Headache [Recovering/Resolving]
  - Insomnia [Recovering/Resolving]
  - Tremor [Recovering/Resolving]
  - Abdominal pain upper [Recovering/Resolving]
  - Palpitations [Recovering/Resolving]
  - Blood pressure increased [Recovering/Resolving]
  - Throat tightness [Recovering/Resolving]
  - Swollen tongue [Recovering/Resolving]

NARRATIVE: CASE EVENT DATE: 20210106
